FAERS Safety Report 8078400-0 (Version None)
Quarter: 2012Q1

REPORT INFORMATION
  Report Type: 
  Country: None (occurrence: None)
  Receive Date: 20120123
  Receipt Date: 20120109
  Transmission Date: 20120608
  Serious: Yes (Other)
  Sender: FDA-Public Use
  Company Number: 2012P1001451

PATIENT
  Age: 57 Year
  Sex: Male
  Weight: 80.7403 kg

DRUGS (6)
  1. NORVASC [Concomitant]
  2. INDERAL [Concomitant]
  3. OTHER UNSPECIFIED MEDICATION FOR HIGH BLOOD PRESSURE [Concomitant]
  4. FENTANYL-75 [Suspect]
     Indication: BACK PAIN
     Dosage: 1 PATCH;Q3DAYS;TDER
     Route: 062
     Dates: start: 20111226
  5. FENTANYL-75 [Suspect]
     Indication: PAIN
     Dosage: 1 PATCH;Q3DAYS;TDER
     Route: 062
     Dates: start: 20111226
  6. FENTANYL-75 [Suspect]
     Indication: ARTHRALGIA
     Dosage: 1 PATCH;Q3DAYS;TDER
     Route: 062
     Dates: start: 20111226

REACTIONS (5)
  - RASH MACULO-PAPULAR [None]
  - LOSS OF CONSCIOUSNESS [None]
  - APPLICATION SITE RASH [None]
  - APPLICATION SITE ULCER [None]
  - DYSPNOEA [None]
